FAERS Safety Report 8212515-9 (Version None)
Quarter: 2012Q1

REPORT INFORMATION
  Report Type: 
  Country: None (occurrence: None)
  Receive Date: 20120315
  Receipt Date: 20120308
  Transmission Date: 20120608
  Serious: Yes (Other)
  Sender: FDA-Public Use
  Company Number: GB-GLAXOSMITHKLINE-B0787226A

PATIENT
  Age: 83 Year
  Sex: Female

DRUGS (1)
  1. LAMICTAL [Suspect]
     Indication: MIGRAINE
     Route: 065
     Dates: start: 20110501

REACTIONS (1)
  - PARKINSONISM [None]
